FAERS Safety Report 6881389-0 (Version None)
Quarter: 2010Q3

REPORT INFORMATION
  Report Type: 
  Country: None (occurrence: None)
  Receive Date: 20100728
  Receipt Date: 20100728
  Transmission Date: 20110219
  Serious: No
  Sender: FDA-Public Use
  Company Number: None

PATIENT
  Sex: Male
  Weight: 100 kg

DRUGS (20)
  1. TEMOZOLOMIDE [Suspect]
     Indication: GLIOBLASTOMA MULTIFORME
     Dosage: 220 MG DAILY ORAL
     Route: 048
     Dates: start: 20091006, end: 20091026
  2. TEMOZOLOMIDE [Suspect]
     Indication: GLIOBLASTOMA MULTIFORME
     Dosage: 220 MG DAILY ORAL
     Route: 048
     Dates: start: 20091103, end: 20091123
  3. TEMOZOLOMIDE [Suspect]
     Indication: GLIOBLASTOMA MULTIFORME
     Dosage: 220 MG DAILY ORAL
     Route: 048
     Dates: start: 20091130, end: 20091220
  4. TEMOZOLOMIDE [Suspect]
     Dosage: 220 MG DAILY ORAL
     Route: 048
     Dates: start: 20100104, end: 20100124
  5. TEMOZOLOMIDE [Suspect]
     Dates: start: 20100201, end: 20100221
  6. TEMOZOLOMIDE [Suspect]
     Dates: start: 20100301, end: 20100321
  7. ASACOL [Concomitant]
  8. DYAZIDE [Concomitant]
  9. LORAZEPAM [Concomitant]
  10. METOPROLOL [Concomitant]
  11. LASIX [Concomitant]
  12. POTASSIUM CHLORIDE [Concomitant]
  13. INDOMETHACIN [Concomitant]
  14. ES TYLENOL [Concomitant]
  15. PREDNISONE [Concomitant]
  16. ONDANSETRON [Concomitant]
  17. PROCHLORPERAZINE [Concomitant]
  18. PENTAMIDINE ISETHIONATE [Concomitant]
  19. DEPAKOTE [Concomitant]
  20. KEPPRA [Concomitant]

REACTIONS (11)
  - ASTHENIA [None]
  - COLITIS ULCERATIVE [None]
  - DEEP VEIN THROMBOSIS [None]
  - FALL [None]
  - GOUT [None]
  - HYPOGLYCAEMIA [None]
  - MALIGNANT NEOPLASM PROGRESSION [None]
  - PULMONARY EMBOLISM [None]
  - PYREXIA [None]
  - SINUS TACHYCARDIA [None]
  - SKIN LACERATION [None]
